FAERS Safety Report 25130612 (Version 1)
Quarter: 2025Q1

REPORT INFORMATION
  Report Type: Spontaneous
  Country: CN (occurrence: CN)
  Receive Date: 20250327
  Receipt Date: 20250327
  Transmission Date: 20250408
  Serious: Yes (Life-Threatening, Hospitalization, Other)
  Sender: BAXTER
  Company Number: None

PATIENT
  Age: 8 Year
  Sex: Female
  Weight: 25 kg

DRUGS (8)
  1. IFOSFAMIDE [Suspect]
     Active Substance: IFOSFAMIDE
     Indication: Bladder cancer
     Route: 041
     Dates: start: 20250219, end: 20250219
  2. SODIUM CHLORIDE [Suspect]
     Active Substance: SODIUM CHLORIDE
     Indication: Medication dilution
     Route: 041
     Dates: start: 20250218, end: 20250218
  3. SODIUM CHLORIDE [Suspect]
     Active Substance: SODIUM CHLORIDE
     Route: 041
     Dates: start: 20250218, end: 20250218
  4. SODIUM CHLORIDE [Suspect]
     Active Substance: SODIUM CHLORIDE
     Route: 041
     Dates: start: 20250219, end: 20250219
  5. SODIUM CHLORIDE [Suspect]
     Active Substance: SODIUM CHLORIDE
     Route: 041
     Dates: start: 20250219, end: 20250219
  6. ETOPOSIDE [Suspect]
     Active Substance: ETOPOSIDE
     Indication: Bladder cancer
     Route: 041
     Dates: start: 20250219, end: 20250219
  7. GEMCITABINE HYDROCHLORIDE [Suspect]
     Active Substance: GEMCITABINE HYDROCHLORIDE
     Indication: Bladder cancer
     Route: 041
     Dates: start: 20250218, end: 20250218
  8. PACLITAXEL [Suspect]
     Active Substance: PACLITAXEL
     Indication: Bladder cancer
     Route: 041
     Dates: start: 20250218, end: 20250218

REACTIONS (1)
  - Myelosuppression [Recovering/Resolving]

NARRATIVE: CASE EVENT DATE: 20250221
